FAERS Safety Report 25620963 (Version 1)
Quarter: 2025Q3

REPORT INFORMATION
  Report Type: Spontaneous
  Country: US (occurrence: US)
  Receive Date: 20250730
  Receipt Date: 20250730
  Transmission Date: 20251020
  Serious: Yes (Other)
  Sender: AMNEAL
  Company Number: US-AMNEAL-2024-AMRX-04594

PATIENT
  Sex: Male

DRUGS (4)
  1. BACLOFEN [Suspect]
     Active Substance: BACLOFEN
     Indication: Product used for unknown indication
     Route: 037
  2. FENTANYL [Concomitant]
     Active Substance: FENTANYL
     Indication: Product used for unknown indication
     Route: 065
  3. HYDROMORPHONE [Concomitant]
     Active Substance: HYDROMORPHONE
     Indication: Product used for unknown indication
     Route: 065
  4. BUPIVACAINE [Concomitant]
     Active Substance: BUPIVACAINE
     Indication: Product used for unknown indication
     Route: 065

REACTIONS (3)
  - Pain [Recovered/Resolved]
  - Device delivery system issue [Unknown]
  - Complication associated with device [Unknown]
